FAERS Safety Report 25001584 (Version 2)
Quarter: 2025Q1

REPORT INFORMATION
  Report Type: Spontaneous
  Country: CN (occurrence: CN)
  Receive Date: 20250223
  Receipt Date: 20250224
  Transmission Date: 20250409
  Serious: Yes (Hospitalization)
  Sender: JIANGSU HENGRUI
  Company Number: CN-SUZHOU SHENGDIA BIOMEDICAL CO., LTD.-H2025203434

PATIENT
  Age: 64 Year
  Weight: 65 kg

DRUGS (3)
  1. PACLITAXEL [Suspect]
     Active Substance: PACLITAXEL
     Indication: Hypopharyngeal cancer
     Dosage: 170 MG, Q3W, D1, 8
  2. CAMRELIZUMAB [Suspect]
     Active Substance: CAMRELIZUMAB
     Indication: Hypopharyngeal cancer
     Dosage: 200 MG, Q3W, D1
  3. CARBOPLATIN [Suspect]
     Active Substance: CARBOPLATIN
     Indication: Hypopharyngeal cancer
     Dosage: 500 MG, Q3W, D1

REACTIONS (1)
  - Urinary tract infection [Recovering/Resolving]
